FAERS Safety Report 16545120 (Version 1)
Quarter: 2019Q3

REPORT INFORMATION
  Report Type: Spontaneous
  Country: US (occurrence: US)
  Receive Date: 20190709
  Receipt Date: 20190709
  Transmission Date: 20191004
  Serious: No
  Sender: FDA-Public Use
  Company Number: US-TEVA-2019-US-1069526

PATIENT
  Age: 48 Year
  Sex: Female

DRUGS (1)
  1. COPAXONE [Suspect]
     Active Substance: GLATIRAMER ACETATE
     Indication: MULTIPLE SCLEROSIS
     Dates: start: 2017

REACTIONS (5)
  - Musculoskeletal discomfort [Unknown]
  - Injury [Unknown]
  - Meralgia paraesthetica [Unknown]
  - Road traffic accident [Unknown]
  - Contusion [Unknown]

NARRATIVE: CASE EVENT DATE: 2017
